FAERS Safety Report 5428348-2 (Version None)
Quarter: 2007Q3

REPORT INFORMATION
  Report Type: 
  Country: None (occurrence: None)
  Receive Date: 20070731
  Receipt Date: 20070430
  Transmission Date: 20080115
  Serious: No
  Sender: FDA-Public Use
  Company Number: US200705000318

PATIENT
  Age: 67 Year
  Sex: Female
  Weight: 81.6 kg

DRUGS (8)
  1. BYETTA [Suspect]
     Indication: TYPE 2 DIABETES MELLITUS
     Dosage: 5 UG, 2/D, SUBCUTANEOUS
     Route: 058
     Dates: start: 20051201, end: 20070227
  2. PRANDIN (DEFLAZACORT) [Concomitant]
  3. METFORMIN HCL [Concomitant]
  4. INSULIN (INSULIN) [Concomitant]
  5. CYMBALTA [Concomitant]
  6. DEPAKOTE [Concomitant]
  7. LITHIUM CARBONATE [Concomitant]
  8. EXENATIDE PEN [Concomitant]

REACTIONS (2)
  - DEPRESSION [None]
  - MOOD SWINGS [None]
